FAERS Safety Report 15690551 (Version 1)
Quarter: 2018Q4

REPORT INFORMATION
  Report Type: Spontaneous
  Country: US (occurrence: US)
  Receive Date: 20181127
  Receipt Date: 20181127
  Transmission Date: 20190205
  Serious: No
  Sender: FDA-Public Use
  Company Number: None

PATIENT
  Age: 49 Year
  Sex: Female

DRUGS (1)
  1. HUMIRA [Suspect]
     Active Substance: ADALIMUMAB
     Indication: RHEUMATOID ARTHRITIS
     Route: 058
     Dates: start: 20180517

REACTIONS (4)
  - Injection site swelling [None]
  - Injection site pain [None]
  - Injection site induration [None]
  - Injection site erythema [None]

NARRATIVE: CASE EVENT DATE: 20181123
